FAERS Safety Report 7718404-8 (Version None)
Quarter: 2011Q3

REPORT INFORMATION
  Report Type: 
  Country: None (occurrence: None)
  Receive Date: 20110830
  Receipt Date: 20110823
  Transmission Date: 20111222
  Serious: Yes (Other)
  Sender: FDA-Public Use
  Company Number: PHHY2011CA31257

PATIENT
  Sex: Male

DRUGS (1)
  1. SANDOSTATIN LAR [Suspect]
     Indication: PANCREATITIS CHRONIC
     Dosage: 30 MG, EVERY 4 WEEKS
     Route: 030
     Dates: start: 20070614

REACTIONS (5)
  - OEDEMA PERIPHERAL [None]
  - GOUT [None]
  - BLOOD GLUCOSE ABNORMAL [None]
  - ABDOMINAL PAIN UPPER [None]
  - BLOOD PRESSURE DECREASED [None]
